FAERS Safety Report 5679863-8 (Version None)
Quarter: 2008Q1

REPORT INFORMATION
  Report Type: 
  Country: None (occurrence: None)
  Receive Date: 20080324
  Receipt Date: 20080310
  Transmission Date: 20080703
  Serious: Yes (Congenital Anomaly)
  Sender: FDA-Public Use
  Company Number: S08-IRL-01032-02

PATIENT
  Age: 4 Day

DRUGS (2)
  1. CITALOPRAM HYDROBROMIDE [Suspect]
  2. CITALOPRAM HYDROBROMIDE [Suspect]

REACTIONS (3)
  - APNOEA [None]
  - DRUG EXPOSURE DURING PREGNANCY [None]
  - PREMATURE BABY [None]
